FAERS Safety Report 10198671 (Version 1)
Quarter: 2014Q2

REPORT INFORMATION
  Report Type: Spontaneous
  Country: US (occurrence: None)
  Receive Date: 20140523
  Receipt Date: 20140523
  Transmission Date: 20141212
  Serious: No
  Sender: FDA-Public Use
  Company Number: None

PATIENT
  Age: 41 Year
  Sex: Female
  Weight: 58.97 kg

DRUGS (1)
  1. SPIRONOLACTONE [Suspect]
     Indication: HYPERALDOSTERONISM
     Route: 048
     Dates: start: 20131001, end: 20140501

REACTIONS (6)
  - Oral mucosal eruption [None]
  - Rash pruritic [None]
  - Product substitution issue [None]
  - Product quality issue [None]
  - Rash [None]
  - Blister [None]
